FAERS Safety Report 19671037 (Version 2)
Quarter: 2021Q3

REPORT INFORMATION
  Report Type: Spontaneous
  Country: PT (occurrence: PT)
  Receive Date: 20210806
  Receipt Date: 20210820
  Transmission Date: 20211014
  Serious: Yes (Other)
  Sender: FDA-Public Use
  Company Number: PT-ALLERGAN-2127620US

PATIENT
  Sex: Female

DRUGS (7)
  1. TRITICUM [Concomitant]
     Active Substance: TRAZODONE HYDROCHLORIDE
     Dosage: 0.25 DF, QD
  2. NEXIUM [Suspect]
     Active Substance: ESOMEPRAZOLE MAGNESIUM
     Dosage: 20 MG, BID
     Route: 048
     Dates: start: 20210712, end: 20210721
  3. CASTILIUM [Concomitant]
     Indication: INSOMNIA
     Dosage: 3 DF, TID
  4. PYLERA [Suspect]
     Active Substance: BISMUTH SUBCITRATE POTASSIUM\METRONIDAZOLE\TETRACYCLINE HYDROCHLORIDE
     Indication: GASTRIC INFECTION
     Dosage: 3 DF, QID
     Route: 048
     Dates: start: 20210712, end: 20210721
  5. EUTIROX [Concomitant]
     Active Substance: LEVOTHYROXINE SODIUM
     Indication: THYROID DISORDER
     Dosage: 1 DF, QD
  6. NEXIUM [Suspect]
     Active Substance: ESOMEPRAZOLE MAGNESIUM
     Indication: GASTRIC INFECTION
     Dosage: 20 MG, QD
     Route: 048
     Dates: start: 20210722
  7. CASTILIUM [Concomitant]
     Indication: ANXIETY
     Dosage: 25 MG
     Route: 048

REACTIONS (11)
  - Product use issue [Unknown]
  - Glaucoma [Recovering/Resolving]
  - Peripheral swelling [Recovered/Resolved]
  - Dry mouth [Unknown]
  - Tongue discolouration [Recovered/Resolved]
  - Dysgeusia [Unknown]
  - Alopecia [Unknown]
  - Paraesthesia [Unknown]
  - Tongue discomfort [Recovered/Resolved]
  - Pain in extremity [Recovered/Resolved]
  - Dizziness [Unknown]

NARRATIVE: CASE EVENT DATE: 20210712
